FAERS Safety Report 10381015 (Version 1)
Quarter: 2014Q3

REPORT INFORMATION
  Report Type: Spontaneous
  Country: US (occurrence: None)
  Receive Date: 20140812
  Receipt Date: 20140812
  Transmission Date: 20150326
  Serious: Yes (Other)
  Sender: FDA-Public Use
  Company Number: None

PATIENT
  Age: 40 Year
  Sex: Male
  Weight: 129.73 kg

DRUGS (1)
  1. TESTOSTERONE CYPIONATE. [Suspect]
     Active Substance: TESTOSTERONE CYPIONATE
     Indication: HYPOGONADISM
     Dosage: 1 ML?EVERY 2 WEEKS ?INTROMUSCLAR
     Route: 030
     Dates: start: 20140808

REACTIONS (3)
  - Pain [None]
  - Night sweats [None]
  - Lethargy [None]

NARRATIVE: CASE EVENT DATE: 20140807
